FAERS Safety Report 17766154 (Version 1)
Quarter: 2020Q2

REPORT INFORMATION
  Report Type: Other
  Country: US (occurrence: US)
  Receive Date: 20200511
  Receipt Date: 20200511
  Transmission Date: 20200714
  Serious: Yes (Life-Threatening, Hospitalization, Other)
  Sender: FDA-Public Use
  Company Number: US-SERVIER-S20001437

PATIENT

DRUGS (8)
  1. TN UNSPECIFIED [DEXAMETHASONE SODIUM SUCCINATE] [Suspect]
     Active Substance: DEXAMETHASONE SODIUM SUCCINATE
     Indication: ACUTE LYMPHOCYTIC LEUKAEMIA
     Dosage: 5 MG/M2/DOSE ON DAYS 1-14 BY MOUTH OR INFUSION TWICE A DAY IN WEEKS 1 AND 2
     Route: 065
  2. TN UNSPECIFIED [DAUNORUBICIN HYDROCHLORIDE] [Suspect]
     Active Substance: DAUNORUBICIN HYDROCHLORIDE
     Indication: ACUTE LYMPHOCYTIC LEUKAEMIA
     Dosage: 25 MG/M2/DOSE ON DAYS 1, 8, 15, 22
     Route: 065
  3. TN UNSPECIFIED [METHOTREXATE SODIUM] [Concomitant]
     Active Substance: METHOTREXATE SODIUM
     Indication: ACUTE LYMPHOCYTIC LEUKAEMIA
     Dosage: UNK
     Route: 065
  4. TN UNSPECIFIED [VINCRISTINE SULFATE] [Suspect]
     Active Substance: VINCRISTINE SULFATE
     Dosage: 0.75 MG/M2/DOSE IV , ON DAYS 1, 8, 15, 22
     Route: 065
  5. ONCASPAR [Suspect]
     Active Substance: PEGASPARGASE
     Indication: ACUTE LYMPHOCYTIC LEUKAEMIA
     Dosage: 2500 IU/M2 ON DAY 4, 5 OR 6
     Route: 065
  6. TN UNSPECIFIED [VINCRISTINE SULFATE] [Suspect]
     Active Substance: VINCRISTINE SULFATE
     Dosage: 0.75 MG/M2/DOSE IV , ON DAYS 1, 8, 15, 22
     Route: 065
  7. TN UNSPECIFIED [VINCRISTINE SULFATE] [Suspect]
     Active Substance: VINCRISTINE SULFATE
     Indication: ACUTE LYMPHOCYTIC LEUKAEMIA
     Dosage: 1.5 MG/M2/DOSE IV , ON DAYS 1, 8, 15, 22
     Route: 065
  8. TN UNSPECIFIED [CYTARABINE] [Suspect]
     Active Substance: CYTARABINE
     Indication: ACUTE LYMPHOCYTIC LEUKAEMIA
     Dosage: UNK
     Route: 065

REACTIONS (7)
  - Respiratory failure [Recovered/Resolved]
  - Neuropathy peripheral [Unknown]
  - Tumour lysis syndrome [Unknown]
  - Constipation [Unknown]
  - Fluid overload [Recovered/Resolved]
  - Vocal cord paralysis [Recovered/Resolved]
  - Vocal cord paresis [Recovered/Resolved]

NARRATIVE: CASE EVENT DATE: 2004
